FAERS Safety Report 9296952 (Version 3)
Quarter: 2013Q3

REPORT INFORMATION
  Report Type: Report from Study
  Country: AU (occurrence: AU)
  Receive Date: 20130518
  Receipt Date: 20130802
  Transmission Date: 20140515
  Serious: Yes (Hospitalization)
  Sender: FDA-Public Use
  Company Number: AU-ROCHE-1217220

PATIENT
  Age: 75 Year
  Sex: Male

DRUGS (11)
  1. CAPECITABINE [Suspect]
     Indication: RECTAL CANCER
     Route: 048
     Dates: start: 20130122, end: 20130125
  2. CAPECITABINE [Suspect]
     Route: 048
     Dates: start: 20130128, end: 20130201
  3. CAPECITABINE [Suspect]
     Route: 048
     Dates: start: 20130204, end: 20130208
  4. CAPECITABINE [Suspect]
     Route: 048
     Dates: start: 20130211, end: 20130215
  5. CAPECITABINE [Suspect]
     Route: 048
     Dates: start: 20130218, end: 20130222
  6. CAPECITABINE [Suspect]
     Route: 048
     Dates: start: 20130225, end: 20130228
  7. ABT-888 [Suspect]
     Indication: RECTAL CANCER
     Route: 048
     Dates: start: 20130123, end: 20130302
  8. MICARDIS [Concomitant]
     Indication: HYPERTENSION
     Dosage: 1 TABLET 1IN D
     Route: 065
     Dates: start: 2011
  9. TEMAZEPAM [Concomitant]
     Indication: INSOMNIA
     Route: 065
     Dates: start: 20130205
  10. DOCUSATE SODIUM\SENNOSIDES [Concomitant]
     Indication: CONSTIPATION
     Dosage: 2 TABLETS
     Route: 065
     Dates: start: 20130227
  11. ACTILAX [Concomitant]
     Indication: CONSTIPATION
     Route: 065
     Dates: start: 201303

REACTIONS (1)
  - Radiation proctitis [Recovered/Resolved]
